FAERS Safety Report 19071298 (Version 3)
Quarter: 2021Q2

REPORT INFORMATION
  Report Type: Report from Study
  Country: US (occurrence: US)
  Receive Date: 20210330
  Receipt Date: 20210513
  Transmission Date: 20210717
  Serious: Yes (Other)
  Sender: FDA-Public Use
  Company Number: US-ROCHE-2794222

PATIENT
  Age: 58 Year
  Sex: Female
  Weight: 122.49 kg

DRUGS (2)
  1. ATEZOLIZUMAB. [Suspect]
     Active Substance: ATEZOLIZUMAB
     Indication: UTERINE CANCER
     Dosage: ON 03/MAR/2021, SHE RECEIVED MOST RECENT DOSE OF ATEZOLIZUMAB (1200 MG) PRIOR TO ONSET OF FIRST EPIS
     Route: 042
     Dates: start: 20210303
  2. BEVACIZUMAB. [Suspect]
     Active Substance: BEVACIZUMAB
     Indication: UTERINE CANCER
     Dosage: ON 03/MAR/2021, SHE RECEIVED MOST RECENT DOSE OF BEVACIZUMAB (1784 MG) PRIOR TO ONSET OF SERIOUS ADV
     Route: 042
     Dates: start: 20210303

REACTIONS (2)
  - Hypertension [Not Recovered/Not Resolved]
  - Hypertension [Unknown]

NARRATIVE: CASE EVENT DATE: 20210317
